FAERS Safety Report 19031134 (Version 1)
Quarter: 2021Q1

REPORT INFORMATION
  Report Type: Spontaneous
  Country: US (occurrence: US)
  Receive Date: 20210319
  Receipt Date: 20210319
  Transmission Date: 20210420
  Serious: Yes (Life-Threatening, Hospitalization)
  Sender: FDA-Public Use
  Company Number: US-MYLANLABS-2021M1016776

PATIENT
  Age: 12 Year
  Sex: Male

DRUGS (7)
  1. EPINEPHRINE. [Suspect]
     Active Substance: EPINEPHRINE
     Indication: CARDIOGENIC SHOCK
     Dosage: 0.12 MICROGRAM/KILOGRAM, QMINUTE
  2. ISOPROTERENOL                      /00006301/ [Suspect]
     Active Substance: ISOPROTERENOL
     Dosage: 0.5 MICROGRAM/KILOGRAM, QMINUTE
  3. FAT EMULSION NOS [Suspect]
     Active Substance: EGG PHOSPHOLIPIDS\SAFFLOWER OIL\SOYBEAN OIL
     Indication: DRUG THERAPY
     Dosage: 1.5 ML/KG
     Route: 065
  4. BUPROPION. [Suspect]
     Active Substance: BUPROPION
     Indication: PRODUCT USED FOR UNKNOWN INDICATION
     Dosage: UNK
     Route: 048
  5. ISOPROTERENOL                      /00006301/ [Suspect]
     Active Substance: ISOPROTERENOL
     Indication: CARDIOGENIC SHOCK
     Dosage: 0.8 MICROGRAM/KILOGRAM, QMINUTE
  6. NOREPINEPHRINE. [Suspect]
     Active Substance: NOREPINEPHRINE
     Indication: CARDIOGENIC SHOCK
     Dosage: 0.2 MICROGRAM/KILOGRAM, QMINUTE
  7. SODIUM BICARBONATE. [Suspect]
     Active Substance: SODIUM BICARBONATE
     Indication: DRUG THERAPY
     Dosage: 18 MEQ/HR
     Route: 065

REACTIONS (5)
  - Cardiotoxicity [Recovering/Resolving]
  - Drug ineffective [Unknown]
  - Overdose [Recovering/Resolving]
  - Torsade de pointes [Recovering/Resolving]
  - Cardiogenic shock [Recovering/Resolving]
